FAERS Safety Report 13517305 (Version 2)
Quarter: 2017Q3

REPORT INFORMATION
  Report Type: Spontaneous
  Country: US (occurrence: US)
  Receive Date: 20170505
  Receipt Date: 20170711
  Transmission Date: 20171127
  Serious: No
  Sender: FDA-Public Use
  Company Number: US-BRISTOL-MYERS SQUIBB COMPANY-BMS-2017-036679

PATIENT
  Sex: Female
  Weight: 65.31 kg

DRUGS (1)
  1. ELIQUIS [Suspect]
     Active Substance: APIXABAN
     Indication: SUPRAVENTRICULAR TACHYCARDIA
     Dosage: UNK, BID
     Route: 048

REACTIONS (4)
  - Haemoglobin decreased [Unknown]
  - Corrective lens user [Unknown]
  - Low density lipoprotein increased [Unknown]
  - Product use in unapproved indication [Unknown]
